FAERS Safety Report 4454117-6 (Version None)
Quarter: 2004Q3

REPORT INFORMATION
  Report Type: 
  Country: None (occurrence: None)
  Receive Date: 20040826
  Receipt Date: 20040510
  Transmission Date: 20050211
  Serious: No
  Sender: FDA-Public Use
  Company Number: WAES 0405USA00577

PATIENT
  Sex: Female
  Weight: 74.3899 kg

DRUGS (8)
  1. ZETIA [Suspect]
     Indication: HYPERCHOLESTEROLAEMIA
     Dosage: 10 MG/DAILY/PO
     Route: 048
     Dates: start: 20031124
  2. ZETIA [Suspect]
     Indication: HYPERCHOLESTEROLAEMIA
     Dosage: 10 MG/DAILY/PO
     Route: 048
     Dates: start: 20040405
  3. ESTRATEST [Concomitant]
  4. GLUCOPHAGE [Concomitant]
  5. MAXZIDE [Concomitant]
  6. PROMETRIUM [Concomitant]
  7. ZOCOR [Concomitant]
  8. MECLIZINE [Concomitant]

REACTIONS (1)
  - DEPRESSION [None]
